FAERS Safety Report 25061857 (Version 3)
Quarter: 2025Q1

REPORT INFORMATION
  Report Type: Report from Study
  Country: US (occurrence: US)
  Receive Date: 20250311
  Receipt Date: 20250320
  Transmission Date: 20250409
  Serious: Yes (Hospitalization)
  Sender: UCB
  Company Number: US-UCBSA-2024059638

PATIENT
  Sex: Male
  Weight: 59 kg

DRUGS (6)
  1. FINTEPLA [Suspect]
     Active Substance: FENFLURAMINE
     Indication: Lennox-Gastaut syndrome
     Dosage: 3 MILLILITER, 2X/DAY (BID)
     Route: 048
     Dates: start: 20230818
  2. FINTEPLA [Suspect]
     Active Substance: FENFLURAMINE
     Dosage: 3 MILLILITER, 2X/DAY (BID)
  3. FINTEPLA [Suspect]
     Active Substance: FENFLURAMINE
     Dosage: 13.2 MILLIGRAM, ONCE DAILY (QD)
  4. FINTEPLA [Suspect]
     Active Substance: FENFLURAMINE
     Dosage: 3 MILLILITER, 2X/DAY (BID)
  5. DEPAKOTE [Concomitant]
     Active Substance: DIVALPROEX SODIUM
     Indication: Product used for unknown indication
     Dosage: 500 MILLIGRAM, 2X/DAY (BID)
     Route: 048
  6. CLOBAZAM [Concomitant]
     Active Substance: CLOBAZAM
     Indication: Product used for unknown indication
     Dosage: UNK UNK, 2X/DAY (BID) (20 MG AM AND 25 MG PM)
     Route: 048

REACTIONS (6)
  - Sedation [Not Recovered/Not Resolved]
  - Gait inability [Not Recovered/Not Resolved]
  - Feeling drunk [Not Recovered/Not Resolved]
  - Posture abnormal [Not Recovered/Not Resolved]
  - Sitting disability [Not Recovered/Not Resolved]
  - Tremor [Not Recovered/Not Resolved]
